FAERS Safety Report 6720449-1 (Version None)
Quarter: 2010Q2

REPORT INFORMATION
  Report Type: 
  Country: None (occurrence: None)
  Receive Date: 20100511
  Receipt Date: 20100428
  Transmission Date: 20101027
  Serious: Yes (Hospitalization)
  Sender: FDA-Public Use
  Company Number: CN-ELI_LILLY_AND_COMPANY-CN201004008054

PATIENT
  Age: 76 Year
  Sex: Female
  Weight: 67 kg

DRUGS (9)
  1. PRASUGREL HYDROCHLORIDE [Suspect]
     Indication: ACUTE MYOCARDIAL INFARCTION
     Dosage: UNK, DAILY (1/D)
     Route: 048
     Dates: start: 20100309
  2. ASPIRIN [Concomitant]
     Indication: ANGINA UNSTABLE
     Dosage: 0.1, DAILY (1/D)
     Route: 048
     Dates: start: 20100305
  3. LIPITOR [Concomitant]
     Indication: ANGINA UNSTABLE
     Dosage: 20 MG, EACH EVENING
     Route: 048
     Dates: start: 20100305
  4. OMEPRAZOLE [Concomitant]
     Indication: GASTRITIS PROPHYLAXIS
     Dosage: 20 MG, DAILY (1/D)
     Route: 048
     Dates: start: 20100315
  5. BETALOC [Concomitant]
     Indication: ANGINA UNSTABLE
     Dosage: 6.25 MG, 2/D
     Route: 048
     Dates: start: 20100307
  6. LOTENSIN [Concomitant]
     Indication: HYPERTENSION
     Dosage: 10 MG, DAILY (1/D)
     Route: 048
     Dates: start: 20100305
  7. DIAMICRON [Concomitant]
     Indication: DIABETES MELLITUS
     Dosage: 60 MG, 2/D
     Route: 048
     Dates: start: 20100407
  8. ACARBOSE [Concomitant]
     Indication: DIABETES MELLITUS
     Dosage: 50 MG, 3/D
     Route: 048
     Dates: start: 20100407
  9. PLAVIX [Concomitant]
     Indication: STENT PLACEMENT
     Dosage: 75 MG, DAILY (1/D)
     Route: 048
     Dates: start: 20100309

REACTIONS (2)
  - DIZZINESS [None]
  - PALPITATIONS [None]
